FAERS Safety Report 12888615 (Version 1)
Quarter: 2016Q4

REPORT INFORMATION
  Report Type: Spontaneous
  Country: BR (occurrence: BR)
  Receive Date: 20161027
  Receipt Date: 20161027
  Transmission Date: 20170207
  Serious: Yes (Other)
  Sender: FDA-Public Use
  Company Number: PHHY2016BR145539

PATIENT
  Sex: Female
  Weight: 95 kg

DRUGS (2)
  1. ONBREZ BREEZHALER [Suspect]
     Active Substance: INDACATEROL
     Indication: EMPHYSEMA
     Dosage: 1 DF, QD
     Route: 055
  2. SEEBRI BREEZHALER [Suspect]
     Active Substance: GLYCOPYRROLATE
     Indication: EMPHYSEMA
     Dosage: 1 DF, QD
     Route: 055

REACTIONS (5)
  - Syncope [Unknown]
  - Respiratory failure [Unknown]
  - Heart rate decreased [Unknown]
  - Cardiac disorder [Unknown]
  - Polyp [Unknown]
